FAERS Safety Report 6236969-2 (Version None)
Quarter: 2009Q2

REPORT INFORMATION
  Report Type: 
  Country: None (occurrence: None)
  Receive Date: 20090619
  Receipt Date: 20090416
  Transmission Date: 20091009
  Serious: No
  Sender: FDA-Public Use
  Company Number: US-ASTRAZENECA-2009UW05743

PATIENT
  Sex: Male

DRUGS (4)
  1. SYMBICORT [Suspect]
     Dosage: 320 MCG BID
     Route: 055
     Dates: start: 20090219, end: 20090225
  2. NEXIUM [Concomitant]
     Route: 048
  3. PRAVASTATIN [Concomitant]
  4. LEVOTHYROXINE SODIUM [Concomitant]

REACTIONS (1)
  - DYSPNOEA [None]
